FAERS Safety Report 8107445-7 (Version None)
Quarter: 2012Q1

REPORT INFORMATION
  Report Type: 
  Country: None (occurrence: None)
  Receive Date: 20120202
  Receipt Date: 20120129
  Transmission Date: 20120608
  Serious: Yes (Hospitalization, Other)
  Sender: FDA-Public Use
  Company Number: US-B.I. PHARMACEUTICALS,INC./RIDGEFIELD-2012-EU-00654GD

PATIENT
  Age: 79 Year
  Sex: Male

DRUGS (1)
  1. DABIGATRAN [Suspect]
     Indication: ATRIAL FIBRILLATION
     Dosage: 300 MG
     Route: 048

REACTIONS (6)
  - MELAENA [None]
  - EPISTAXIS [None]
  - SHOCK [None]
  - SYNCOPE [None]
  - FALL [None]
  - GASTROINTESTINAL HAEMORRHAGE [None]
